FAERS Safety Report 8438908-2 (Version None)
Quarter: 2012Q2

REPORT INFORMATION
  Report Type: 
  Country: None (occurrence: None)
  Receive Date: 20120605
  Receipt Date: 20120524
  Transmission Date: 20120825
  Serious: Yes (Hospitalization)
  Sender: FDA-Public Use
  Company Number: WAES 1205USA04613

PATIENT
  Age: 74 Year
  Sex: Male

DRUGS (5)
  1. CAP VORINOSTAT UNK [Suspect]
     Indication: ACUTE MYELOID LEUKAEMIA
     Dosage: 400 MG/DAILY/PO
     Route: 048
     Dates: start: 20110819, end: 20111024
  2. MYLOTARG [Suspect]
     Indication: ACUTE MYELOID LEUKAEMIA
     Dosage: 3 MG/M[2]//SC, 3 MG/M[2]/IV
     Route: 058
     Dates: start: 20110819
  3. MYLOTARG [Suspect]
     Indication: ACUTE MYELOID LEUKAEMIA
     Dosage: 3 MG/M[2]//SC, 3 MG/M[2]/IV
     Route: 058
     Dates: start: 20111025
  4. VIDAZA [Suspect]
     Indication: ACUTE MYELOID LEUKAEMIA
     Dosage: 75 MG/M[2]/DAILY/SC, 75 MG/M[2]/DAILY/SC
     Route: 058
     Dates: start: 20111025
  5. VIDAZA [Suspect]
     Indication: ACUTE MYELOID LEUKAEMIA
     Dosage: 75 MG/M[2]/DAILY/SC, 75 MG/M[2]/DAILY/SC
     Route: 058
     Dates: start: 20110819

REACTIONS (3)
  - PANCYTOPENIA [None]
  - DEHYDRATION [None]
  - DIARRHOEA [None]
